FAERS Safety Report 13510384 (Version 2)
Quarter: 2017Q3

REPORT INFORMATION
  Report Type: Report from Study
  Country: US (occurrence: US)
  Receive Date: 20170503
  Receipt Date: 20170728
  Transmission Date: 20171127
  Serious: No
  Sender: FDA-Public Use
  Company Number: US-AMGEN-USASL2017029257

PATIENT
  Age: 62 Year
  Sex: Female

DRUGS (2)
  1. REPATHA [Suspect]
     Active Substance: EVOLOCUMAB
     Indication: BLOOD CHOLESTEROL INCREASED
  2. REPATHA [Suspect]
     Active Substance: EVOLOCUMAB
     Indication: HYPERCHOLESTEROLAEMIA
     Dosage: 140 MG, Q2WK
     Route: 065
     Dates: start: 2016

REACTIONS (13)
  - Adverse drug reaction [Unknown]
  - Back pain [Unknown]
  - Pain [Unknown]
  - Muscle spasms [Unknown]
  - Condition aggravated [Not Recovered/Not Resolved]
  - Hypersensitivity [Unknown]
  - Frequent bowel movements [Unknown]
  - Pollakiuria [Unknown]
  - Diarrhoea [Unknown]
  - Blood cholesterol increased [Unknown]
  - Intentional product misuse [Unknown]
  - Mobility decreased [Unknown]
  - Loss of personal independence in daily activities [Unknown]

NARRATIVE: CASE EVENT DATE: 201701
